FAERS Safety Report 20138538 (Version 3)
Quarter: 2021Q4

REPORT INFORMATION
  Report Type: Spontaneous
  Country: US (occurrence: US)
  Receive Date: 20211202
  Receipt Date: 20211217
  Transmission Date: 20220303
  Serious: Yes (Hospitalization, Other)
  Sender: FDA-Public Use
  Company Number: US-ORGANON-O2112USA000003

PATIENT
  Age: 44 Year
  Sex: Female
  Weight: 40 kg

DRUGS (5)
  1. SINEMET [Suspect]
     Active Substance: CARBIDOPA\LEVODOPA
     Dosage: 10/100 MILLIGRAMS DAILY (QD)
     Route: 048
  2. GOCOVRI [Suspect]
     Active Substance: AMANTADINE
     Indication: Dyskinesia
     Dosage: 1X/DAY (VIA SAMPLES)
     Route: 048
     Dates: start: 20210908, end: 20210911
  3. GOCOVRI [Suspect]
     Active Substance: AMANTADINE
     Indication: On and off phenomenon
  4. CARBIDOPA AND LEVODOPA [Suspect]
     Active Substance: CARBIDOPA\LEVODOPA
     Dosage: UNK
  5. SINEMET [Suspect]
     Active Substance: CARBIDOPA\LEVODOPA
     Dosage: 25/100 MILLIGRAMS

REACTIONS (2)
  - Acute psychosis [Recovered/Resolved]
  - Toxic encephalopathy [Recovered/Resolved]

NARRATIVE: CASE EVENT DATE: 20210901
